FAERS Safety Report 24786248 (Version 5)
Quarter: 2025Q2

REPORT INFORMATION
  Report Type: Spontaneous
  Country: JP (occurrence: JP)
  Receive Date: 20241229
  Receipt Date: 20250613
  Transmission Date: 20250717
  Serious: Yes (Death, Life-Threatening, Hospitalization, Other)
  Sender: ASTELLAS
  Company Number: JP-ASTELLAS-2024-AER-023229

PATIENT
  Age: 77 Year
  Sex: Male
  Weight: 57 kg

DRUGS (21)
  1. PADCEV [Suspect]
     Active Substance: ENFORTUMAB VEDOTIN-EJFV
     Indication: Malignant neoplasm of renal pelvis
     Route: 042
     Dates: start: 20241107, end: 20241107
  2. VANCOMYCIN [Suspect]
     Active Substance: VANCOMYCIN
     Indication: Product used for unknown indication
     Route: 065
     Dates: start: 20241203, end: 20241208
  3. AZILSARTAN tablet [Concomitant]
     Indication: Hypertension
     Route: 048
     Dates: end: 20241215
  4. NIFEDIPINE CR tablet [Concomitant]
     Indication: Hypertension
     Route: 048
     Dates: end: 20241215
  5. RABEPRAZOLE NA tablet [Concomitant]
     Indication: Gastrooesophageal reflux disease
     Route: 048
     Dates: end: 20241126
  6. CHOLEBINE Mini tablet 83% [Concomitant]
     Indication: Hypercholesterolaemia
     Dosage: 1500MG/1.81G
     Route: 048
     Dates: end: 20241215
  7. KEYTRUDA [Concomitant]
     Active Substance: PEMBROLIZUMAB
     Indication: Product used for unknown indication
     Route: 065
     Dates: start: 20241107
  8. BETAMETHASONE [Concomitant]
     Active Substance: BETAMETHASONE
     Indication: Rash
     Route: 061
     Dates: start: 20241109
  9. BETAMETHASONE [Concomitant]
     Active Substance: BETAMETHASONE
     Indication: Drug eruption
     Route: 061
     Dates: start: 20241208
  10. FEXOFENADINE [Concomitant]
     Active Substance: FEXOFENADINE HYDROCHLORIDE
     Indication: Pruritus
     Route: 065
     Dates: start: 20241109
  11. PIPERACILLIN SODIUM\TAZOBACTAM SODIUM [Concomitant]
     Active Substance: PIPERACILLIN SODIUM\TAZOBACTAM SODIUM
     Indication: Pyelonephritis
     Route: 065
     Dates: start: 20241114, end: 202411
  12. PIPERACILLIN SODIUM\TAZOBACTAM SODIUM [Concomitant]
     Active Substance: PIPERACILLIN SODIUM\TAZOBACTAM SODIUM
     Route: 065
     Dates: start: 20241120
  13. MEROPENEM [Concomitant]
     Active Substance: MEROPENEM
     Indication: Product used for unknown indication
     Route: 065
     Dates: start: 20241122
  14. PREDNISOLONE [Concomitant]
     Active Substance: PREDNISOLONE
     Indication: Product used for unknown indication
     Route: 065
     Dates: start: 20241125
  15. PREDNISOLONE [Concomitant]
     Active Substance: PREDNISOLONE
     Route: 065
     Dates: start: 20241202
  16. MICAFUNGIN [Concomitant]
     Active Substance: MICAFUNGIN SODIUM
     Indication: Product used for unknown indication
     Route: 065
     Dates: start: 20241202
  17. SULFAMETHOXAZOLE AND TRIMETHOPRIM [Concomitant]
     Active Substance: SULFAMETHOXAZOLE\TRIMETHOPRIM
     Indication: Product used for unknown indication
     Route: 065
  18. ATOVAQUONE [Concomitant]
     Active Substance: ATOVAQUONE
     Indication: Pneumonia bacterial
     Route: 065
     Dates: start: 20241212
  19. ATOVAQUONE [Concomitant]
     Active Substance: ATOVAQUONE
     Indication: Pulmonary toxicity
  20. ATOVAQUONE [Concomitant]
     Active Substance: ATOVAQUONE
     Indication: Bronchopulmonary aspergillosis
  21. POSACONAZOLE [Concomitant]
     Active Substance: POSACONAZOLE
     Indication: Bronchopulmonary aspergillosis
     Route: 065
     Dates: start: 20241212

REACTIONS (8)
  - Pneumonia bacterial [Fatal]
  - Pulmonary toxicity [Fatal]
  - Pleurisy bacterial [Fatal]
  - Bronchopulmonary aspergillosis [Not Recovered/Not Resolved]
  - Interstitial lung disease [Unknown]
  - Rash [Recovering/Resolving]
  - Pyelonephritis acute [Recovering/Resolving]
  - Drug eruption [Not Recovered/Not Resolved]

NARRATIVE: CASE EVENT DATE: 20241109
